FAERS Safety Report 5445944-7 (Version None)
Quarter: 2007Q3

REPORT INFORMATION
  Report Type: 
  Country: None (occurrence: None)
  Receive Date: 20070904
  Receipt Date: 20070827
  Transmission Date: 20080115
  Serious: Yes (Death, Other)
  Sender: FDA-Public Use
  Company Number: 2007SP005945

PATIENT
  Age: 45 Year
  Sex: Male
  Weight: 65 kg

DRUGS (13)
  1. TEMODAL [Suspect]
     Indication: GLIOMA
     Dosage: 240 MG; QD; PO, 340 MG; QD; PO
     Dates: start: 20060920, end: 20060924
  2. TEMODAL [Suspect]
     Indication: GLIOMA
     Dosage: 240 MG; QD; PO, 340 MG; QD; PO
     Dates: start: 20061020, end: 20061024
  3. NIDRAN [Concomitant]
  4. METHOTREXATE [Concomitant]
  5. IFOSFAMIDE [Concomitant]
  6. CISPLATIN [Concomitant]
  7. ETOPOSIDE [Concomitant]
  8. BAKTAR [Concomitant]
  9. EXCEGRAN [Concomitant]
  10. PREDONINE [Concomitant]
  11. FAMOTIDINE [Concomitant]
  12. MAGNESIUM OXIDE [Concomitant]
  13. NASEA-OD [Concomitant]

REACTIONS (14)
  - C-REACTIVE PROTEIN INCREASED [None]
  - DISEASE PROGRESSION [None]
  - GAMMA-GLUTAMYLTRANSFERASE INCREASED [None]
  - GLIOMA [None]
  - HEPATIC FUNCTION ABNORMAL [None]
  - INFLAMMATION [None]
  - LIVER DISORDER [None]
  - LYMPHOCYTE COUNT DECREASED [None]
  - MALIGNANT NEOPLASM PROGRESSION [None]
  - PERFORMANCE STATUS DECREASED [None]
  - PNEUMONIA ASPIRATION [None]
  - SERUM AMYLOID A PROTEIN INCREASED [None]
  - SPUTUM CULTURE POSITIVE [None]
  - STAPHYLOCOCCAL INFECTION [None]
